FAERS Safety Report 9371592 (Version 4)
Quarter: 2013Q4

REPORT INFORMATION
  Report Type: Report from Study
  Country: US (occurrence: US)
  Receive Date: 20130627
  Receipt Date: 20131118
  Transmission Date: 20140711
  Serious: Yes (Other)
  Sender: FDA-Public Use
  Company Number: PHEH2013US013300

PATIENT
  Age: 61 Year
  Sex: Female

DRUGS (5)
  1. DIOVAN [Suspect]
     Indication: HYPERTENSION
     Dosage: 1 DF, (160 MG) A DAY
  2. DIOVAN [Suspect]
     Dosage: 2 DF (160 MG) A DAY
     Dates: start: 20130617
  3. DIOVAN [Suspect]
     Dosage: 360 MG, UNK
  4. DIOVAN [Suspect]
     Dosage: 320 MG, UNK
     Route: 048
  5. KLONOPIN [Concomitant]

REACTIONS (12)
  - Hyperthyroidism [Unknown]
  - Panic attack [Unknown]
  - Agitation [Unknown]
  - Nervousness [Unknown]
  - Malaise [Unknown]
  - Gait disturbance [Unknown]
  - Fear [Unknown]
  - Dyspnoea [Unknown]
  - Renal disorder [Unknown]
  - Blood pressure fluctuation [Unknown]
  - Vomiting [Unknown]
  - Incorrect dose administered [Unknown]
